FAERS Safety Report 11438978 (Version 1)
Quarter: 2015Q3

REPORT INFORMATION
  Report Type: Spontaneous
  Country: NL (occurrence: NL)
  Receive Date: 20150901
  Receipt Date: 20150901
  Transmission Date: 20151125
  Serious: Yes (Other)
  Sender: FDA-Public Use
  Company Number: NL-ALXN-A201503212AA

PATIENT

DRUGS (6)
  1. TACROLIMUS. [Suspect]
     Active Substance: TACROLIMUS
     Indication: IMMUNOSUPPRESSION
     Route: 065
  2. CELLCEPT [Concomitant]
     Active Substance: MYCOPHENOLATE MOFETIL\MYCOPHENOLATE MOFETIL HYDROCHLORIDE
     Indication: IMMUNOSUPPRESSION
     Dosage: 250 MG, BID
     Route: 065
  3. SOLIRIS [Suspect]
     Active Substance: ECULIZUMAB
     Indication: OFF LABEL USE
     Dosage: 1200 MG, Q2W
     Route: 042
  4. PREDNISONE. [Concomitant]
     Active Substance: PREDNISONE
     Indication: IMMUNOSUPPRESSION
     Dosage: 5 MG, UNK
     Route: 065
  5. SOLIRIS [Suspect]
     Active Substance: ECULIZUMAB
     Indication: GLOMERULONEPHRITIS
     Dosage: 900 MG, UNK
     Route: 042
     Dates: start: 20130109
  6. AZATHIOPRINE. [Suspect]
     Active Substance: AZATHIOPRINE
     Indication: COLITIS
     Dosage: UNK
     Route: 065

REACTIONS (9)
  - Off label use [Unknown]
  - Renal transplant failure [Unknown]
  - Renal pain [Unknown]
  - Kidney transplant rejection [Unknown]
  - Haemolytic anaemia [Unknown]
  - Complement factor decreased [Unknown]
  - Colitis [Recovered/Resolved]
  - Immunosuppressant drug level decreased [Unknown]
  - Adverse drug reaction [Unknown]

NARRATIVE: CASE EVENT DATE: 2013
